FAERS Safety Report 26212924 (Version 1)
Quarter: 2025Q4

REPORT INFORMATION
  Report Type: Spontaneous
  Country: CN (occurrence: CN)
  Receive Date: 20251230
  Receipt Date: 20251230
  Transmission Date: 20260118
  Serious: Yes (Hospitalization, Other)
  Sender: ASTELLAS
  Company Number: CN-ASTELLAS-2025-AER-071790

PATIENT
  Sex: Male

DRUGS (8)
  1. PROGRAF [Suspect]
     Active Substance: TACROLIMUS
     Indication: Heart transplant
     Dosage: TARGET TACROLIMUS TROUGH LEVELS WERE ADJUSTED ACCORDING TO THE POSTOPERATIVE PHASE: FOR THE FIRST 3
     Route: 065
     Dates: start: 20230313, end: 20230315
  2. PROGRAF [Suspect]
     Active Substance: TACROLIMUS
     Dosage: DOSE TAPERED
     Route: 065
     Dates: start: 2024, end: 202502
  3. PROGRAF [Suspect]
     Active Substance: TACROLIMUS
     Dosage: TACROLIMUS LEVELS WERE REDUCED TO A TARGET RANGE OF 10^-12 NG/ML
     Route: 065
     Dates: start: 202502
  4. PROGRAF [Suspect]
     Active Substance: TACROLIMUS
     Route: 065
     Dates: start: 20230315, end: 2024
  5. PREDNISONE [Suspect]
     Active Substance: PREDNISONE
     Indication: Heart transplant
     Route: 065
     Dates: start: 20230313, end: 20230315
  6. PREDNISONE [Suspect]
     Active Substance: PREDNISONE
     Route: 065
     Dates: start: 20230315, end: 20230324
  7. PREDNISONE [Suspect]
     Active Substance: PREDNISONE
     Route: 065
     Dates: start: 20230324
  8. MYCOPHENOLATE MOFETIL [Concomitant]
     Active Substance: MYCOPHENOLATE MOFETIL
     Indication: Heart transplant
     Route: 065
     Dates: start: 20230313

REACTIONS (8)
  - Pleural effusion [Recovering/Resolving]
  - Hepatic enzyme increased [Recovering/Resolving]
  - Hepatotoxicity [Recovering/Resolving]
  - Toxicity to various agents [Recovering/Resolving]
  - Heart transplant rejection [Recovering/Resolving]
  - Myocardial injury [Recovering/Resolving]
  - Transplant dysfunction [Recovering/Resolving]
  - Hyperlipidaemia [Recovering/Resolving]

NARRATIVE: CASE EVENT DATE: 20240101
